FAERS Safety Report 5514127-4 (Version None)
Quarter: 2007Q4

REPORT INFORMATION
  Report Type: 
  Country: None (occurrence: None)
  Receive Date: 20071113
  Receipt Date: 20071105
  Transmission Date: 20080405
  Serious: Yes (Hospitalization)
  Sender: FDA-Public Use
  Company Number: FR-BRISTOL-MYERS SQUIBB COMPANY-13978911

PATIENT
  Age: 58 Year
  Sex: Male

DRUGS (4)
  1. ERBITUX [Suspect]
     Route: 042
     Dates: start: 20070924, end: 20070924
  2. TRANXENE [Concomitant]
  3. VITAMIN B COMPLEX CAP [Concomitant]
  4. LEXOMIL [Concomitant]

REACTIONS (3)
  - CYANOSIS [None]
  - INFUSION RELATED REACTION [None]
  - MALAISE [None]
